FAERS Safety Report 5355141-1 (Version None)
Quarter: 2007Q2

REPORT INFORMATION
  Report Type: 
  Country: None (occurrence: None)
  Receive Date: 20070613
  Receipt Date: 20070601
  Transmission Date: 20071010
  Serious: Yes (Hospitalization)
  Sender: FDA-Public Use
  Company Number: CH-JNJFOC-20070600333

PATIENT
  Age: 53 Year
  Sex: Male
  Weight: 70 kg

DRUGS (11)
  1. REOPRO [Suspect]
     Indication: DRUG USE FOR UNKNOWN INDICATION
     Route: 042
  2. HEPARIN SODIUM [Suspect]
     Indication: DRUG USE FOR UNKNOWN INDICATION
     Route: 042
  3. CLOPIDOGREL [Suspect]
     Indication: DRUG USE FOR UNKNOWN INDICATION
     Route: 048
  4. ACETYLSALICYLIC ACID SRT [Suspect]
     Indication: DRUG USE FOR UNKNOWN INDICATION
     Route: 048
  5. AMIODARONE HCL [Concomitant]
     Route: 042
  6. PHENTOLAMINE MESYLATE [Concomitant]
     Route: 042
  7. GLYCERYL TRINITRATE [Concomitant]
     Route: 042
  8. ATORVASTATIN CALCIUM [Concomitant]
     Route: 048
  9. AMOXICILLIN + CLAVULANATE POTASSIUM [Concomitant]
     Route: 042
  10. RAMIPRIL [Concomitant]
     Route: 048
  11. LEVOSIMENDAN [Concomitant]
     Route: 042

REACTIONS (7)
  - CARDIOGENIC SHOCK [None]
  - EPISTAXIS [None]
  - HAEMATEMESIS [None]
  - HAEMATURIA [None]
  - HAEMORRHAGIC ANAEMIA [None]
  - MALLORY-WEISS SYNDROME [None]
  - THROMBOCYTOPENIA [None]
